FAERS Safety Report 8194413-2 (Version None)
Quarter: 2012Q1

REPORT INFORMATION
  Report Type: 
  Country: None (occurrence: None)
  Receive Date: 20120308
  Receipt Date: 20120305
  Transmission Date: 20120608
  Serious: Yes (Hospitalization)
  Sender: FDA-Public Use
  Company Number: BR-PFIZER INC-2012059220

PATIENT
  Age: 52 Year
  Sex: Male

DRUGS (3)
  1. NORVASC [Suspect]
     Indication: HYPERTENSION
     Dosage: 5 MG, 1X/DAY
     Route: 048
     Dates: start: 20110916
  2. ATENOLOL [Concomitant]
     Indication: HYPERTENSION
     Dosage: ONE TABLET DAILY
  3. OLMESARTAN MEDOXOMIL AND HYDROCHLOROTHIZIDE [Suspect]
     Indication: BLOOD PRESSURE ABNORMAL
     Dosage: 40MG/ 12.5MG (ONE TABLET), FREQUENCY UNKNOWN
     Route: 048
     Dates: start: 20110916

REACTIONS (4)
  - JOINT INJURY [None]
  - ACCIDENT [None]
  - LOWER LIMB FRACTURE [None]
  - JOINT DISLOCATION [None]
